FAERS Safety Report 6420332-5 (Version None)
Quarter: 2009Q4

REPORT INFORMATION
  Report Type: 
  Country: None (occurrence: None)
  Receive Date: 20091029
  Receipt Date: 20091021
  Transmission Date: 20100525
  Serious: Yes (Other)
  Sender: FDA-Public Use
  Company Number: US-BAXTER-2009BH016391

PATIENT
  Age: 48 Year
  Sex: Female

DRUGS (1)
  1. ADENOSINE [Suspect]
     Indication: SINGLE PHOTON EMISSION COMPUTERISED TOMOGRAM
     Route: 042

REACTIONS (1)
  - ELECTROCARDIOGRAM ST SEGMENT DEPRESSION [None]
